FAERS Safety Report 18130934 (Version 4)
Quarter: 2020Q4

REPORT INFORMATION
  Report Type: Spontaneous
  Country: US (occurrence: US)
  Receive Date: 20200810
  Receipt Date: 20201223
  Transmission Date: 20210113
  Serious: No
  Sender: FDA-Public Use
  Company Number: US-PFIZER INC-2020296360

PATIENT
  Age: 85 Year
  Sex: Female
  Weight: 81.65 kg

DRUGS (3)
  1. GENOTROPIN [Suspect]
     Active Substance: SOMATROPIN
     Indication: HYPOPITUITARISM
     Dosage: UNK
  2. GENOTROPIN [Suspect]
     Active Substance: SOMATROPIN
     Indication: BRAIN NEOPLASM
     Dosage: 0.1 MG, 5 DAYS A WEEK
  3. GENOTROPIN [Suspect]
     Active Substance: SOMATROPIN
     Dosage: 0.1MG, ADMINISTERED DAILY SUBCUTANEOUSLY TO LEGS OR FATTY PART OF HIP
     Route: 058

REACTIONS (8)
  - Product dose omission issue [Unknown]
  - Device issue [Unknown]
  - Off label use [Unknown]
  - Osteoporosis [Unknown]
  - Memory impairment [Unknown]
  - Device breakage [Not Recovered/Not Resolved]
  - Device use issue [Not Recovered/Not Resolved]
  - Device power source issue [Not Recovered/Not Resolved]

NARRATIVE: CASE EVENT DATE: 202008
